FAERS Safety Report 19231973 (Version 1)
Quarter: 2021Q2

REPORT INFORMATION
  Report Type: Report from Study
  Country: MX (occurrence: MX)
  Receive Date: 20210507
  Receipt Date: 20210507
  Transmission Date: 20210717
  Serious: Yes (Other)
  Sender: FDA-Public Use
  Company Number: MX-ASTRAZENECA-2020SF33779

PATIENT
  Age: 69 Year
  Sex: Female
  Weight: 52 kg

DRUGS (28)
  1. TAGRISSO [Suspect]
     Active Substance: OSIMERTINIB
     Indication: LUNG NEOPLASM MALIGNANT
     Dosage: SHE FEELS THAT WITH THE 60 MG DOSE HER PRESSURE CHANGED. SHE COMMENTS THAT WHEN SHE USED 40MG HER...
     Route: 048
  2. CRESTOR [Suspect]
     Active Substance: ROSUVASTATIN CALCIUM
     Indication: BLOOD CREATINE PHOSPHOKINASE INCREASED
     Route: 048
  3. VITAMIN E [Concomitant]
     Active Substance: .ALPHA.-TOCOPHEROL
     Dosage: IN THE MORNING
     Route: 048
     Dates: start: 202103
  4. TAGRISSO [Suspect]
     Active Substance: OSIMERTINIB
     Indication: LUNG ADENOCARCINOMA
     Dosage: SHE FEELS THAT WITH THE 60 MG DOSE HER PRESSURE CHANGED. SHE COMMENTS THAT WHEN SHE USED 40MG HER...
     Route: 048
  5. CRESTOR [Suspect]
     Active Substance: ROSUVASTATIN CALCIUM
     Indication: BLOOD CREATINE PHOSPHOKINASE INCREASED
     Route: 048
  6. EUTHYROX [Concomitant]
     Active Substance: LEVOTHYROXINE SODIUM
     Indication: HYPOTHYROIDISM
     Dosage: 88.0UG UNKNOWN
     Route: 048
  7. ATACAND PLUS [Suspect]
     Active Substance: CANDESARTAN CILEXETIL\HYDROCHLOROTHIAZIDE
     Indication: HYPERTENSION
     Dosage: TAKE HALF A TABLET IN THE MORNING
     Route: 048
     Dates: start: 20201113, end: 20210220
  8. ATACAND PLUS [Suspect]
     Active Substance: CANDESARTAN CILEXETIL\HYDROCHLOROTHIAZIDE
     Indication: HYPERTENSION
     Dosage: TAKE HALF A TABLET INTERMITTENT
     Route: 048
     Dates: start: 20210406
  9. TAGRISSO [Suspect]
     Active Substance: OSIMERTINIB
     Indication: LUNG ADENOCARCINOMA
     Route: 048
  10. TAGRISSO [Suspect]
     Active Substance: OSIMERTINIB
     Indication: LUNG NEOPLASM MALIGNANT
     Dosage: AT A DOSE OF 80 MG ONE DAY AND THE NEXT DAY 40MG DILUTED IN 30 ML OF WATER
     Route: 048
     Dates: start: 20201219
  11. LORATADINE. [Concomitant]
     Active Substance: LORATADINE
     Indication: HYPERSENSITIVITY
     Route: 065
  12. XGEVA [Concomitant]
     Active Substance: DENOSUMAB
     Indication: OSTEOPENIA
     Dosage: 120.0MG UNKNOWN
     Route: 058
     Dates: start: 202103
  13. TAGRISSO [Suspect]
     Active Substance: OSIMERTINIB
     Indication: LUNG NEOPLASM MALIGNANT
     Route: 048
     Dates: start: 20210208
  14. CRESTOR [Suspect]
     Active Substance: ROSUVASTATIN CALCIUM
     Indication: BLOOD CHOLESTEROL INCREASED
     Route: 048
  15. TEMERIT [Concomitant]
     Active Substance: NEBIVOLOL
     Indication: HYPERTENSION
     Dosage: 5MG A QUARTER TABLET AT NIGHT ORALLY
     Dates: end: 20210220
  16. TAGRISSO [Suspect]
     Active Substance: OSIMERTINIB
     Indication: LUNG NEOPLASM MALIGNANT
     Route: 048
     Dates: start: 20201208
  17. TAGRISSO [Suspect]
     Active Substance: OSIMERTINIB
     Indication: LUNG NEOPLASM MALIGNANT
     Route: 048
     Dates: start: 20200602, end: 20201106
  18. TAGRISSO [Suspect]
     Active Substance: OSIMERTINIB
     Indication: LUNG ADENOCARCINOMA
     Route: 048
     Dates: start: 20201208
  19. ATACAND PLUS [Suspect]
     Active Substance: CANDESARTAN CILEXETIL\HYDROCHLOROTHIAZIDE
     Indication: HYPERTENSION
     Dosage: 16/12.5 MG ONE DOSAGE FORM IN THE MORNING
     Route: 048
     Dates: start: 2004
  20. ATACAND [Suspect]
     Active Substance: CANDESARTAN CILEXETIL
     Indication: HYPERTENSION
     Route: 048
     Dates: start: 2004
  21. CRESTOR [Suspect]
     Active Substance: ROSUVASTATIN CALCIUM
     Indication: BLOOD CREATINE PHOSPHOKINASE INCREASED
     Route: 048
  22. RIFAXIMINA [Concomitant]
     Active Substance: RIFAXIMIN
     Route: 048
     Dates: start: 20210218
  23. TAGRISSO [Suspect]
     Active Substance: OSIMERTINIB
     Indication: LUNG ADENOCARCINOMA
     Route: 048
     Dates: start: 20200602, end: 20201106
  24. TAGRISSO [Suspect]
     Active Substance: OSIMERTINIB
     Indication: LUNG NEOPLASM MALIGNANT
     Route: 048
  25. TAGRISSO [Suspect]
     Active Substance: OSIMERTINIB
     Indication: LUNG ADENOCARCINOMA
     Dosage: AT A DOSE OF 80 MG ONE DAY AND THE NEXT DAY 40MG DILUTED IN 30 ML OF WATER
     Route: 048
     Dates: start: 20201219
  26. TAGRISSO [Suspect]
     Active Substance: OSIMERTINIB
     Indication: LUNG ADENOCARCINOMA
     Route: 048
     Dates: start: 20210208
  27. CRESTOR [Suspect]
     Active Substance: ROSUVASTATIN CALCIUM
     Indication: BLOOD CHOLESTEROL INCREASED
     Route: 048
  28. CRESTOR [Suspect]
     Active Substance: ROSUVASTATIN CALCIUM
     Indication: BLOOD CHOLESTEROL INCREASED
     Route: 048

REACTIONS (52)
  - Erythema [Recovered/Resolved]
  - Dry mouth [Recovered/Resolved]
  - Swelling of eyelid [Recovered/Resolved]
  - Peripheral venous disease [Recovered/Resolved]
  - Headache [Unknown]
  - Incorrect dose administered [Not Recovered/Not Resolved]
  - Dry skin [Recovered/Resolved]
  - Arthralgia [Recovered/Resolved]
  - Skin irritation [Recovering/Resolving]
  - Drug hypersensitivity [Recovered/Resolved]
  - Sensitive skin [Recovered/Resolved]
  - Fatigue [Unknown]
  - Diarrhoea [Recovered/Resolved]
  - Mouth ulceration [Recovered/Resolved]
  - Epigastric discomfort [Recovered/Resolved]
  - Oral pain [Recovered/Resolved]
  - Somnolence [Unknown]
  - Abdominal discomfort [Recovering/Resolving]
  - Lip ulceration [Recovered/Resolved]
  - Joint swelling [Recovered/Resolved]
  - Dyspepsia [Recovered/Resolved]
  - Nervousness [Unknown]
  - Irritability [Unknown]
  - Dysgeusia [Unknown]
  - Salivary hypersecretion [Unknown]
  - Urticaria [Recovered/Resolved]
  - Tongue ulceration [Recovered/Resolved]
  - Feeding disorder [Recovered/Resolved]
  - Rosacea [Unknown]
  - Wound [Unknown]
  - Vertigo positional [Recovered/Resolved]
  - Malaise [Recovering/Resolving]
  - Off label use [Unknown]
  - Blood pressure increased [Recovering/Resolving]
  - Dizziness [Recovering/Resolving]
  - Nausea [Recovering/Resolving]
  - Enteritis infectious [Recovered/Resolved]
  - Skin disorder [Unknown]
  - Insomnia [Unknown]
  - Angiopathy [Recovering/Resolving]
  - Toxicity to various agents [Unknown]
  - Lip dry [Recovered/Resolved]
  - Gastric disorder [Recovered/Resolved]
  - Eye irritation [Not Recovered/Not Resolved]
  - Muscle spasms [Unknown]
  - Skin burning sensation [Recovered/Resolved]
  - Feeling abnormal [Unknown]
  - Swelling face [Recovered/Resolved]
  - Asthenia [Recovered/Resolved]
  - Gastrointestinal pain [Recovered/Resolved]
  - Hunger [Recovered/Resolved]
  - Mucosal dryness [Unknown]

NARRATIVE: CASE EVENT DATE: 20200824
